FAERS Safety Report 13826184 (Version 7)
Quarter: 2018Q3

REPORT INFORMATION
  Report Type: Spontaneous
  Country: FR (occurrence: FR)
  Receive Date: 20170802
  Receipt Date: 20180911
  Transmission Date: 20181010
  Serious: Yes (Hospitalization, Congenital Anomaly, Other)
  Sender: FDA-Public Use
  Company Number: FR-GLAXOSMITHKLINE-FR2017GSK118733

PATIENT
  Age: 0 Day
  Sex: Male

DRUGS (2)
  1. EPIVIR [Suspect]
     Active Substance: LAMIVUDINE
     Indication: HIV INFECTION
     Dosage: UNK
     Route: 064
     Dates: end: 20170608
  2. ISENTRESS [Suspect]
     Active Substance: RALTEGRAVIR POTASSIUM
     Indication: HIV INFECTION
     Dosage: UNK
     Route: 064
     Dates: end: 20170608

REACTIONS (8)
  - Ear malformation [Unknown]
  - Oesophageal atresia [Recovered/Resolved with Sequelae]
  - Tracheo-oesophageal fistula [Unknown]
  - Tracheal deviation [Unknown]
  - Hypoxic-ischaemic encephalopathy [Unknown]
  - Foetal exposure during pregnancy [Unknown]
  - Hypotonia [Unknown]
  - Tracheal fistula repair [Unknown]

NARRATIVE: CASE EVENT DATE: 20170608
